FAERS Safety Report 24858686 (Version 1)
Quarter: 2025Q1

REPORT INFORMATION
  Report Type: Spontaneous
  Country: US (occurrence: US)
  Receive Date: 20250118
  Receipt Date: 20250118
  Transmission Date: 20250409
  Serious: No
  Sender: SANOFI AVENTIS
  Company Number: US-SA-2025SA012634

PATIENT
  Age: 72 Year
  Sex: Male

DRUGS (16)
  1. DUPIXENT [Suspect]
     Active Substance: DUPILUMAB
     Indication: Chronic obstructive pulmonary disease
     Dosage: 300 MG, QOW
     Route: 058
  2. CILOSTAZOL [Concomitant]
     Active Substance: CILOSTAZOL
  3. MAGNESIUM [Concomitant]
     Active Substance: MAGNESIUM
  4. ARFORMOTEROL [Concomitant]
     Active Substance: ARFORMOTEROL
  5. ATORVASTATIN [Concomitant]
     Active Substance: ATORVASTATIN
  6. FUROSEMIDE [Concomitant]
     Active Substance: FUROSEMIDE
  7. GEMTESA [Concomitant]
     Active Substance: VIBEGRON
  8. HYDROCODONE [Concomitant]
     Active Substance: HYDROCODONE
  9. JARDIANCE [Concomitant]
     Active Substance: EMPAGLIFLOZIN
  10. LISINOPRIL [Concomitant]
     Active Substance: LISINOPRIL
  11. MONTELUKAST [Concomitant]
     Active Substance: MONTELUKAST
  12. MYRBETRIQ [Concomitant]
     Active Substance: MIRABEGRON
  13. POTASSIUM CHLORIDE [Concomitant]
     Active Substance: POTASSIUM CHLORIDE
  14. PREDNISONE [Concomitant]
     Active Substance: PREDNISONE
  15. ROFLUMILAST [Concomitant]
     Active Substance: ROFLUMILAST
  16. VENTOLIN HFA [Concomitant]
     Active Substance: ALBUTEROL SULFATE

REACTIONS (5)
  - Cough [Unknown]
  - Dyspnoea [Unknown]
  - Wheezing [Unknown]
  - Productive cough [Unknown]
  - Drug ineffective [Unknown]
